FAERS Safety Report 6173637-X (Version None)
Quarter: 2009Q2

REPORT INFORMATION
  Report Type: 
  Country: None (occurrence: None)
  Receive Date: 20090430
  Receipt Date: 20090427
  Transmission Date: 20091009
  Serious: Yes (Hospitalization)
  Sender: FDA-Public Use
  Company Number: US-MERCK-0904USA03567

PATIENT
  Age: 80 Year
  Sex: Male

DRUGS (3)
  1. COZAAR [Suspect]
     Route: 048
     Dates: start: 20090101
  2. COZAAR [Suspect]
     Route: 048
     Dates: start: 20090101, end: 20090101
  3. COZAAR [Suspect]
     Route: 048
     Dates: start: 20090303, end: 20090101

REACTIONS (3)
  - ATRIAL FLUTTER [None]
  - HYPERTENSION [None]
  - VISUAL IMPAIRMENT [None]
